FAERS Safety Report 4427863-8 (Version None)
Quarter: 2004Q3

REPORT INFORMATION
  Report Type: 
  Country: None (occurrence: None)
  Receive Date: 20040812
  Receipt Date: 20040729
  Transmission Date: 20050211
  Serious: Yes (Hospitalization)
  Sender: FDA-Public Use
  Company Number: 202236

PATIENT
  Age: 49 Year
  Sex: Female
  Weight: 102.0593 kg

DRUGS (3)
  1. AVONEX [Suspect]
     Indication: MULTIPLE SCLEROSIS
     Dosage: 30 MCG QW IM
     Route: 030
     Dates: start: 20030901
  2. PROTONIX [Concomitant]
  3. PROZAC [Concomitant]

REACTIONS (10)
  - DEPRESSION [None]
  - EAR INFECTION [None]
  - FATIGUE [None]
  - HOT FLUSH [None]
  - HYPERSENSITIVITY [None]
  - HYPERTENSION [None]
  - INSOMNIA [None]
  - MUSCLE CRAMP [None]
  - OVARIAN CYST [None]
  - URINARY TRACT INFECTION [None]
